FAERS Safety Report 6982028-0 (Version None)
Quarter: 2010Q3

REPORT INFORMATION
  Report Type: 
  Country: None (occurrence: None)
  Receive Date: 20100914
  Receipt Date: 20091104
  Transmission Date: 20110219
  Serious: No
  Sender: FDA-Public Use
  Company Number: US-PFIZER INC-2009293919

PATIENT
  Sex: Female
  Weight: 55.8 kg

DRUGS (1)
  1. LYRICA [Suspect]
     Indication: NERVE INJURY
     Dosage: 150 MG, 3X/DAY
     Route: 048
     Dates: start: 20060101

REACTIONS (2)
  - ARTHRITIS [None]
  - URTICARIA [None]
